FAERS Safety Report 5449818-7 (Version None)
Quarter: 2007Q3

REPORT INFORMATION
  Report Type: 
  Country: None (occurrence: None)
  Receive Date: 20070912
  Receipt Date: 20070905
  Transmission Date: 20080115
  Serious: Yes (Hospitalization, Other)
  Sender: FDA-Public Use
  Company Number: DE-JNJFOC-20070900468

PATIENT
  Sex: Female

DRUGS (2)
  1. RISPERDAL CONSTA [Suspect]
     Indication: PSYCHOTIC DISORDER
     Route: 030
  2. CIATYL [Concomitant]
     Indication: PSYCHOTIC DISORDER

REACTIONS (2)
  - RESPIRATORY FAILURE [None]
  - TORSADE DE POINTES [None]
